FAERS Safety Report 14240179 (Version 1)
Quarter: 2017Q4

REPORT INFORMATION
  Report Type: Spontaneous
  Country: PL (occurrence: PL)
  Receive Date: 20171130
  Receipt Date: 20171130
  Transmission Date: 20180321
  Serious: Yes (Death)
  Sender: FDA-Public Use
  Company Number: PL-JUBILANT CADISTA PHARMACEUTICALS-2017JUB00405

PATIENT
  Sex: Female

DRUGS (1)
  1. PREDNISONE. [Suspect]
     Active Substance: PREDNISONE
     Indication: ORGANISING PNEUMONIA
     Dosage: 1.0 TO 0.3 MG/KG/D
     Route: 065

REACTIONS (1)
  - Gastrointestinal haemorrhage [Fatal]
